FAERS Safety Report 5583920-4 (Version None)
Quarter: 2008Q1

REPORT INFORMATION
  Report Type: 
  Country: None (occurrence: None)
  Receive Date: 20080102
  Receipt Date: 20080102
  Transmission Date: 20080703
  Serious: Yes (Hospitalization)
  Sender: FDA-Public Use
  Company Number: None

PATIENT
  Age: 46 Year
  Sex: Male
  Weight: 50 kg

DRUGS (2)
  1. EMTRICITABINE/TENOFOVIR [Suspect]
     Indication: HIV INFECTION
     Dosage: 200MG  EVERY DAY  PO
     Route: 048
     Dates: start: 20070628, end: 20070823
  2. NAPROXEN [Suspect]
     Indication: PAIN
     Dosage: 500MG  BID  PO
     Route: 048
     Dates: start: 20070806, end: 20070816

REACTIONS (1)
  - RENAL FAILURE ACUTE [None]
